FAERS Safety Report 8162316-5 (Version None)
Quarter: 2012Q1

REPORT INFORMATION
  Report Type: 
  Country: None (occurrence: None)
  Receive Date: 20120224
  Receipt Date: 20110713
  Transmission Date: 20120608
  Serious: No
  Sender: FDA-Public Use
  Company Number: US-MYLANLABS-2011S1014541

PATIENT
  Sex: Female

DRUGS (6)
  1. PLAVIX [Concomitant]
     Route: 048
  2. FISH OIL [Concomitant]
     Route: 048
  3. VITAMIN D [Concomitant]
     Route: 048
  4. ANAGRELIDE HYDROCHLORIDE [Interacting]
     Indication: PLATELET COUNT INCREASED
     Route: 048
     Dates: start: 20080101
  5. HYDROXYUREA [Suspect]
  6. HYDROCHLOROTHIAZIDE [Suspect]
     Indication: FLUID RETENTION
     Dates: start: 20110101, end: 20110101

REACTIONS (5)
  - SYNCOPE [None]
  - BLOOD PRESSURE INCREASED [None]
  - VISUAL IMPAIRMENT [None]
  - DEHYDRATION [None]
  - DRUG INTERACTION [None]
